FAERS Safety Report 25010685 (Version 1)
Quarter: 2025Q1

REPORT INFORMATION
  Report Type: Spontaneous
  Country: US (occurrence: US)
  Receive Date: 20250225
  Receipt Date: 20250225
  Transmission Date: 20250409
  Serious: Yes (Hospitalization, Other)
  Sender: ANI
  Company Number: US-ANIPHARMA-2025-US-008763

PATIENT
  Age: 2 Year
  Sex: Female

DRUGS (3)
  1. VANCOMYCIN HYDROCHLORIDE [Suspect]
     Active Substance: VANCOMYCIN HYDROCHLORIDE
     Indication: Product used for unknown indication
  2. LEVETIRACETAM [Concomitant]
     Active Substance: LEVETIRACETAM
  3. ACYCLOVIR [Concomitant]
     Active Substance: ACYCLOVIR

REACTIONS (1)
  - Mastocytosis [Recovered/Resolved]
